FAERS Safety Report 7130553-4 (Version None)
Quarter: 2010Q4

REPORT INFORMATION
  Report Type: 
  Country: None (occurrence: None)
  Receive Date: 20101201
  Receipt Date: 20101130
  Transmission Date: 20110411
  Serious: Yes (Life-Threatening)
  Sender: FDA-Public Use
  Company Number: DE-SANOFI-AVENTIS-2010SA072261

PATIENT
  Age: 84 Year
  Sex: Female
  Weight: 57 kg

DRUGS (1)
  1. MULTAQ [Suspect]
     Dosage: 400 MG 1-0-1 (MORGENS U. ABENDS MIT DER MAHLZEIT)
     Route: 048
     Dates: start: 20101118, end: 20101123

REACTIONS (2)
  - ARRHYTHMIA [None]
  - TORSADE DE POINTES [None]
